FAERS Safety Report 13743531 (Version 5)
Quarter: 2018Q1

REPORT INFORMATION
  Report Type: Spontaneous
  Country: US (occurrence: US)
  Receive Date: 20170711
  Receipt Date: 20180302
  Transmission Date: 20180508
  Serious: Yes (Hospitalization)
  Sender: FDA-Public Use
  Company Number: US-ACTELION-A-NJ2017-156445

PATIENT
  Age: 48 Year
  Sex: Female
  Weight: 128.8 kg

DRUGS (11)
  1. LEVOTHYROXINE. [Concomitant]
     Active Substance: LEVOTHYROXINE
  2. IRON [Concomitant]
     Active Substance: IRON
  3. TORSEMIDE. [Concomitant]
     Active Substance: TORSEMIDE
  4. DEMADEX [Concomitant]
     Active Substance: TORSEMIDE
  5. LISINOPRIL. [Suspect]
     Active Substance: LISINOPRIL
     Indication: ACCIDENTAL EXPOSURE TO PRODUCT
     Route: 048
  6. SYNTHROID [Concomitant]
     Active Substance: LEVOTHYROXINE SODIUM
  7. VELETRI [Suspect]
     Active Substance: EPOPROSTENOL
     Indication: PULMONARY ARTERIAL HYPERTENSION
     Dosage: 56 NG/KG, PER MIN
     Route: 042
     Dates: start: 2013
  8. COUMADIN [Concomitant]
     Active Substance: WARFARIN SODIUM
  9. AMIODARONE [Concomitant]
     Active Substance: AMIODARONE
  10. POTASSIUM [Concomitant]
     Active Substance: POTASSIUM
  11. SILDENAFIL. [Concomitant]
     Active Substance: SILDENAFIL

REACTIONS (10)
  - Accidental exposure to product [Unknown]
  - Blood urea increased [Unknown]
  - Blood creatinine increased [Unknown]
  - Blood potassium decreased [Recovering/Resolving]
  - Cellulitis [Recovered/Resolved]
  - Peripheral swelling [Recovering/Resolving]
  - Acute kidney injury [Recovering/Resolving]
  - Gastrointestinal disorder [Recovering/Resolving]
  - Hypophagia [Recovering/Resolving]
  - Mineral supplementation [Recovering/Resolving]
